FAERS Safety Report 7209425-2 (Version None)
Quarter: 2011Q1

REPORT INFORMATION
  Report Type: 
  Country: None (occurrence: None)
  Receive Date: 20110104
  Receipt Date: 20101014
  Transmission Date: 20110831
  Serious: Yes (Hospitalization, Other)
  Sender: FDA-Public Use
  Company Number: US-BAYER-201022371NA

PATIENT
  Sex: Female
  Weight: 54.091 kg

DRUGS (3)
  1. BUPROBAN [Concomitant]
     Indication: EX-TOBACCO USER
     Dates: start: 20070914
  2. ADVIL [Concomitant]
     Indication: PAIN
  3. YASMIN [Suspect]
     Indication: ACNE
     Dosage: 1 DF (DAILY DOSE), QD, ORAL
     Route: 048
     Dates: start: 20070318, end: 20070501

REACTIONS (4)
  - DYSPNOEA [None]
  - PULMONARY EMBOLISM [None]
  - PULMONARY INFARCTION [None]
  - CHEST PAIN [None]
